FAERS Safety Report 5013858-2 (Version None)
Quarter: 2006Q2

REPORT INFORMATION
  Report Type: 
  Country: None (occurrence: None)
  Receive Date: 20060530
  Receipt Date: 20060428
  Transmission Date: 20061013
  Serious: Yes (Death)
  Sender: FDA-Public Use
  Company Number: SE-ROCHE-446282

PATIENT
  Age: 62 Year
  Sex: Female

DRUGS (7)
  1. CAPECITABINE [Suspect]
     Indication: BREAST CANCER
     Dosage: 2 WEEKS OF TREATMENT FOLLOWED BY 1 WEEK REST (AS PER PROTOCOL) REPORTED DAILY DOSE = 3000MG (1500MG+
     Route: 048
     Dates: start: 20060228, end: 20060428
  2. TAXOTERE [Suspect]
     Indication: BREAST CANCER
     Dosage: ON DAY 1, AS PER PROTOCOL REPORTED DOSE = 120MG X 1
     Route: 042
     Dates: start: 20060228
  3. LASIX [Concomitant]
     Dosage: DRUG REPORTED AS ^LASIX DET^
  4. ENALAPRIL [Concomitant]
  5. SIMVASTATIN [Concomitant]
  6. LOGIMAX [Concomitant]
     Dosage: DRUG REPORTED AS ^LOGIMAX FORTE^
  7. INSULATARD NPH HUMAN [Concomitant]

REACTIONS (1)
  - ACUTE MYOCARDIAL INFARCTION [None]
